FAERS Safety Report 7916704-X (Version None)
Quarter: 2011Q4

REPORT INFORMATION
  Report Type: 
  Country: None (occurrence: None)
  Receive Date: 20111114
  Receipt Date: 20111110
  Transmission Date: 20120403
  Serious: Yes (Hospitalization, Disabling)
  Sender: FDA-Public Use
  Company Number: 2011SP016551

PATIENT
  Age: 28 Year
  Sex: Female
  Weight: 93.8946 kg

DRUGS (2)
  1. NUVARING [Suspect]
     Indication: CONTRACEPTION
     Dates: start: 20080201, end: 20080506
  2. NUVARING [Suspect]
     Indication: CONTRACEPTION
     Dates: start: 20040101, end: 20040101

REACTIONS (11)
  - ANGINA PECTORIS [None]
  - ASTHENIA [None]
  - STOMATITIS [None]
  - NAUSEA [None]
  - LIGAMENT RUPTURE [None]
  - PULMONARY EMBOLISM [None]
  - FIBRIN D DIMER INCREASED [None]
  - ARTHRALGIA [None]
  - VOMITING [None]
  - SINUS TACHYCARDIA [None]
  - PAIN IN EXTREMITY [None]
